FAERS Safety Report 13640657 (Version 1)
Quarter: 2017Q2

REPORT INFORMATION
  Report Type: Spontaneous
  Country: CN (occurrence: CN)
  Receive Date: 20170611
  Receipt Date: 20170611
  Transmission Date: 20170830
  Serious: Yes (Death)
  Sender: FDA-Public Use
  Company Number: CN-ROCHE-1946554

PATIENT

DRUGS (1)
  1. MABTHERA [Suspect]
     Active Substance: RITUXIMAB
     Indication: DISEASE PROGRESSION
     Route: 041

REACTIONS (2)
  - Death [Fatal]
  - Drug hypersensitivity [Unknown]
